FAERS Safety Report 22331497 (Version 1)
Quarter: 2023Q2

REPORT INFORMATION
  Report Type: Spontaneous
  Country: US (occurrence: None)
  Receive Date: 20230515
  Receipt Date: 20230515
  Transmission Date: 20230721
  Serious: No
  Sender: FDA-Public Use
  Company Number: None

PATIENT
  Age: 38 Year
  Sex: Female

DRUGS (1)
  1. ENBREL [Suspect]
     Active Substance: ETANERCEPT
     Dosage: OTHER FREQUENCY : WEEKLY;?
     Route: 058

REACTIONS (3)
  - Optic neuritis [None]
  - Therapy interrupted [None]
  - Blindness transient [None]

NARRATIVE: CASE EVENT DATE: 20230508
